FAERS Safety Report 7901665 (Version 4)
Quarter: 2014Q1

REPORT INFORMATION
  Report Type: Spontaneous
  Country: US (occurrence: US)
  Receive Date: 20110415
  Receipt Date: 20140212
  Transmission Date: 20141002
  Serious: Yes (Hospitalization)
  Sender: FDA-Public Use
  Company Number: US-B.I. PHARMACEUTICALS,INC./RIDGEFIELD-2011-BP-03503BP

PATIENT
  Age: 79 Year
  Sex: Female
  Weight: 59.87 kg

DRUGS (10)
  1. PRADAXA [Suspect]
     Indication: ATRIAL FIBRILLATION
     Dosage: 300 MG
     Route: 048
     Dates: start: 20101119, end: 20110708
  2. PRADAXA [Suspect]
     Indication: THERAPY CHANGE
  3. PRADAXA [Suspect]
     Indication: ARRHYTHMIA
  4. LEVOXACIN [Concomitant]
     Indication: THYROID DISORDER
     Dosage: 7.5 MG
     Route: 048
  5. EXFORGE [Concomitant]
     Indication: HYPERTENSION
     Route: 048
  6. MULTAQ [Concomitant]
     Indication: ATRIAL FIBRILLATION
     Dosage: 400 MG
     Route: 048
  7. METOPROLOL [Concomitant]
     Dosage: 25 MG
     Route: 048
  8. LEVOTHYROXIN [Concomitant]
     Dosage: 0.75 MG
  9. ASPIRIN [Concomitant]
     Dosage: 81 MG
  10. TOPROL XL [Concomitant]

REACTIONS (3)
  - Subdural haematoma [Unknown]
  - Abdominal discomfort [Recovered/Resolved]
  - Throat irritation [Recovered/Resolved]
